FAERS Safety Report 4635252-6 (Version None)
Quarter: 2005Q2

REPORT INFORMATION
  Report Type: 
  Country: None (occurrence: None)
  Receive Date: 20050414
  Receipt Date: 20050406
  Transmission Date: 20051028
  Serious: Yes (Hospitalization)
  Sender: FDA-Public Use
  Company Number: PHFR2005GB01431

PATIENT
  Age: 41 Year
  Sex: Male

DRUGS (3)
  1. CLOZARIL [Suspect]
     Indication: SCHIZOPHRENIA
     Dosage: 250MG/AM 300MG/PM
     Route: 048
     Dates: start: 20050302
  2. CLOZARIL [Suspect]
     Dosage: 600MG/PM ONCE
     Route: 048
     Dates: start: 20050406
  3. LAMOTRIGINE [Concomitant]

REACTIONS (2)
  - HYPOTENSION [None]
  - MEDICATION ERROR [None]
